FAERS Safety Report 24660510 (Version 6)
Quarter: 2025Q1

REPORT INFORMATION
  Report Type: Spontaneous
  Country: DE (occurrence: DE)
  Receive Date: 20241125
  Receipt Date: 20250113
  Transmission Date: 20250409
  Serious: Yes (Hospitalization)
  Sender: BIOMARIN
  Company Number: DE-BIOMARINAP-DE-2024-162063

PATIENT

DRUGS (2)
  1. NAGLAZYME [Suspect]
     Active Substance: GALSULFASE
     Indication: Mucopolysaccharidosis VI
     Dosage: 25 MILLIGRAM, QW
     Route: 042
  2. FLOXAL [Concomitant]
     Active Substance: OFLOXACIN
     Indication: Product used for unknown indication

REACTIONS (4)
  - Fall [Recovering/Resolving]
  - Corneal graft failure [Recovering/Resolving]
  - Eye injury [Recovering/Resolving]
  - Lens extraction [Recovering/Resolving]

NARRATIVE: CASE EVENT DATE: 20241116
